FAERS Safety Report 23358938 (Version 8)
Quarter: 2024Q4

REPORT INFORMATION
  Report Type: Spontaneous
  Country: US (occurrence: US)
  Receive Date: 20240102
  Receipt Date: 20241203
  Transmission Date: 20250114
  Serious: Yes (Other)
  Sender: PFIZER
  Company Number: US-PFIZER INC-PV202300209207

PATIENT
  Age: 82 Year
  Sex: Female

DRUGS (4)
  1. IBRANCE [Suspect]
     Active Substance: PALBOCICLIB
     Indication: Breast cancer female
     Dosage: TAKE 1 TABLET BY MOUTH AS DIRECTED. 1 P.O. DAILY FOR 21
     Route: 048
  2. IBRANCE [Suspect]
     Active Substance: PALBOCICLIB
     Dosage: FOR 21 OUT OF 28 DAYS/ DAILY FOR 21 DAYS, OFF 7
     Route: 048
     Dates: start: 20240117
  3. IBRANCE [Suspect]
     Active Substance: PALBOCICLIB
     Dosage: 100MG TABLETS, 21 DAYS ON/7 DAYS OFF
  4. FASLODEX [Concomitant]
     Active Substance: FULVESTRANT
     Dosage: UNK

REACTIONS (3)
  - Dementia [Unknown]
  - Memory impairment [Unknown]
  - Product dose omission in error [Unknown]
